FAERS Safety Report 4875070-7 (Version None)
Quarter: 2006Q1

REPORT INFORMATION
  Report Type: 
  Country: None (occurrence: None)
  Receive Date: 20060104
  Receipt Date: 20051219
  Transmission Date: 20060701
  Serious: Yes (Other)
  Sender: FDA-Public Use
  Company Number: MPS1-10482

PATIENT
  Age: 11 Year
  Sex: Female

DRUGS (1)
  1. ALDURAZYME [Suspect]
     Indication: MUCOPOLYSACCHARIDOSIS I
     Dates: start: 20040101

REACTIONS (3)
  - ENDOCARDITIS BACTERIAL [None]
  - PULMONARY HYPERTENSION [None]
  - RESTRICTIVE PULMONARY DISEASE [None]
